FAERS Safety Report 16671913 (Version 2)
Quarter: 2019Q3

REPORT INFORMATION
  Report Type: Spontaneous
  Country: GB (occurrence: GB)
  Receive Date: 20190806
  Receipt Date: 20190913
  Transmission Date: 20191004
  Serious: Yes (Hospitalization, Other)
  Sender: FDA-Public Use
  Company Number: GB-AUROBINDO-AUR-APL-2019-044297

PATIENT
  Age: 57 Year
  Sex: Male

DRUGS (6)
  1. AMOXICILLIN. [Suspect]
     Active Substance: AMOXICILLIN
     Indication: HELICOBACTER DUODENITIS
     Dosage: UNK
     Route: 065
  2. AMOXICILLIN. [Interacting]
     Active Substance: AMOXICILLIN
     Indication: HELICOBACTER GASTRITIS
  3. CLARITHROMYCIN. [Interacting]
     Active Substance: CLARITHROMYCIN
     Indication: HELICOBACTER DUODENITIS
  4. OMEPRAZOLE. [Interacting]
     Active Substance: OMEPRAZOLE
     Indication: HELICOBACTER GASTRITIS
  5. CLARITHROMYCIN. [Interacting]
     Active Substance: CLARITHROMYCIN
     Indication: HELICOBACTER GASTRITIS
     Dosage: UNK
     Route: 065
  6. OMEPRAZOLE. [Interacting]
     Active Substance: OMEPRAZOLE
     Indication: HELICOBACTER DUODENITIS
     Dosage: UNK
     Route: 065

REACTIONS (15)
  - Reticulocytosis [Recovered/Resolved]
  - Blood folate decreased [Recovered/Resolved]
  - Haemolysis [Recovered/Resolved]
  - Haemolytic anaemia [Recovered/Resolved]
  - Lethargy [Recovered/Resolved]
  - Microcytic anaemia [Recovered/Resolved]
  - Blood lactate dehydrogenase increased [Recovered/Resolved]
  - Serum ferritin increased [Recovered/Resolved]
  - Intravascular haemolysis [Recovered/Resolved]
  - Pallor [Recovered/Resolved]
  - Drug interaction [Unknown]
  - Jaundice [Recovered/Resolved]
  - Dyspnoea [Recovered/Resolved]
  - Splenomegaly [Recovered/Resolved]
  - Hyperbilirubinaemia [Recovered/Resolved]
